FAERS Safety Report 9456237 (Version 1)
Quarter: 2013Q3

REPORT INFORMATION
  Report Type: Spontaneous
  Country: IT (occurrence: IT)
  Receive Date: 20130813
  Receipt Date: 20130813
  Transmission Date: 20140515
  Serious: Yes (Other)
  Sender: FDA-Public Use
  Company Number: IT-BRISTOL-MYERS SQUIBB COMPANY-19162502

PATIENT
  Sex: Male

DRUGS (3)
  1. ATAZANAVIR [Suspect]
     Indication: HIV INFECTION
  2. RALTEGRAVIR [Suspect]
     Indication: HIV INFECTION
  3. AMIODARONE [Concomitant]

REACTIONS (1)
  - Renal impairment [Unknown]
